FAERS Safety Report 14220667 (Version 3)
Quarter: 2019Q1

REPORT INFORMATION
  Report Type: Spontaneous
  Country: IT (occurrence: IT)
  Receive Date: 20171124
  Receipt Date: 20190116
  Transmission Date: 20190417
  Serious: Yes (Death, Hospitalization, Other)
  Sender: FDA-Public Use
  Company Number: IT-SA-2017SA226994

PATIENT
  Age: 72 Year
  Sex: Male

DRUGS (2)
  1. MYOZYME [Suspect]
     Active Substance: ALGLUCOSIDASE ALFA
     Indication: GLYCOGEN STORAGE DISEASE TYPE II
     Dosage: UNK UNK,QOW
     Route: 041
  2. MYOZYME [Suspect]
     Active Substance: ALGLUCOSIDASE ALFA
     Dosage: UNK UNK,QOW
     Route: 041
     Dates: start: 20180204

REACTIONS (13)
  - Acute respiratory failure [Unknown]
  - Bedridden [Unknown]
  - Dysstasia [Unknown]
  - Septic shock [Unknown]
  - Motor dysfunction [Unknown]
  - Multiple organ dysfunction syndrome [Fatal]
  - Gait inability [Unknown]
  - Sepsis [Fatal]
  - Urinary tract infection [Fatal]
  - Drug ineffective [Unknown]
  - Disease progression [Unknown]
  - Dyspnoea [Unknown]
  - Ileus paralytic [Unknown]
